FAERS Safety Report 13756824 (Version 1)
Quarter: 2017Q3

REPORT INFORMATION
  Report Type: Spontaneous
  Country: US (occurrence: US)
  Receive Date: 20170714
  Receipt Date: 20170714
  Transmission Date: 20171127
  Serious: Yes (Death)
  Sender: FDA-Public Use
  Company Number: US-HAEMONETICS CORP-2023395

PATIENT
  Age: 40 Year
  Sex: Male
  Weight: 62.27 kg

DRUGS (1)
  1. HAEMONETICS ANTICOAGULANT SODIUM CITRATE [Suspect]
     Active Substance: TRISODIUM CITRATE DIHYDRATE
     Indication: PRODUCT USED FOR UNKNOWN INDICATION
     Route: 042
     Dates: start: 20170627, end: 20170627

REACTIONS (11)
  - Dyspnoea [None]
  - Unresponsive to stimuli [None]
  - Pallor [None]
  - Confusional state [None]
  - Nausea [None]
  - Hyperhidrosis [None]
  - Disorientation [None]
  - Heart rate decreased [None]
  - Blood pressure immeasurable [None]
  - Death [Fatal]
  - Pupils unequal [None]

NARRATIVE: CASE EVENT DATE: 20170627
